FAERS Safety Report 14578618 (Version 1)
Quarter: 2018Q1

REPORT INFORMATION
  Report Type: Spontaneous
  Country: DE (occurrence: DE)
  Receive Date: 20180227
  Receipt Date: 20180227
  Transmission Date: 20180509
  Serious: Yes (Other)
  Sender: FDA-Public Use
  Company Number: DE-SA-2018SA046237

PATIENT
  Sex: Male
  Weight: 95 kg

DRUGS (8)
  1. PANTOPRAZOL [Concomitant]
     Active Substance: PANTOPRAZOLE SODIUM
     Route: 065
  2. BISOPROLOL RATIOPHARM [Suspect]
     Active Substance: BISOPROLOL
     Indication: VASCULAR GRAFT
     Route: 048
     Dates: start: 20150701
  3. SIMVASTATIN. [Concomitant]
     Active Substance: SIMVASTATIN
     Route: 065
  4. BISOPROLOL RATIOPHARM [Suspect]
     Active Substance: BISOPROLOL
     Indication: VASCULAR GRAFT
     Route: 048
  5. CLOPIDOGREL ZENTIVA [Suspect]
     Active Substance: CLOPIDOGREL BISULFATE
     Indication: CORONARY ARTERIAL STENT INSERTION
     Route: 048
     Dates: start: 20010101
  6. TOUJEO [Concomitant]
     Active Substance: INSULIN GLARGINE
  7. VALSARTAN. [Suspect]
     Active Substance: VALSARTAN
     Indication: VASCULAR GRAFT
     Route: 048
     Dates: start: 20160901
  8. LORATADINE. [Concomitant]
     Active Substance: LORATADINE

REACTIONS (20)
  - Rhinitis allergic [Not Recovered/Not Resolved]
  - Sleep disorder [Not Recovered/Not Resolved]
  - Swelling [Not Recovered/Not Resolved]
  - Chronic obstructive pulmonary disease [Not Recovered/Not Resolved]
  - Rash [Not Recovered/Not Resolved]
  - Dizziness [Not Recovered/Not Resolved]
  - Dysphagia [Not Recovered/Not Resolved]
  - Psoriasis [Not Recovered/Not Resolved]
  - Blood pressure decreased [Not Recovered/Not Resolved]
  - Asthenia [Not Recovered/Not Resolved]
  - Asthma [Not Recovered/Not Resolved]
  - Nausea [Not Recovered/Not Resolved]
  - Delirium [Unknown]
  - Dyspnoea [Not Recovered/Not Resolved]
  - Pruritus [Not Recovered/Not Resolved]
  - Headache [Not Recovered/Not Resolved]
  - Arthralgia [Not Recovered/Not Resolved]
  - Blood glucose abnormal [Not Recovered/Not Resolved]
  - Hypoacusis [Not Recovered/Not Resolved]
  - Fatigue [Not Recovered/Not Resolved]
